FAERS Safety Report 20173884 (Version 1)
Quarter: 2021Q4

REPORT INFORMATION
  Report Type: Spontaneous
  Country: US (occurrence: US)
  Receive Date: 20211213
  Receipt Date: 20211213
  Transmission Date: 20220303
  Serious: No
  Sender: FDA-Public Use
  Company Number: US-AUROBINDO-AUR-APL-2021-025262

PATIENT
  Sex: Male

DRUGS (1)
  1. MIRTAZAPINE [Suspect]
     Active Substance: MIRTAZAPINE
     Indication: Product used for unknown indication
     Dosage: 3.75 MILLIGRAM, AT BED TIME
     Route: 045

REACTIONS (4)
  - Illness [Unknown]
  - Gait disturbance [Unknown]
  - Drug ineffective [Unknown]
  - Wrong technique in product usage process [Unknown]
